FAERS Safety Report 4967350-1 (Version None)
Quarter: 2006Q2

REPORT INFORMATION
  Report Type: 
  Country: None (occurrence: None)
  Receive Date: 20060410
  Receipt Date: 20060328
  Transmission Date: 20061013
  Serious: Yes (Death)
  Sender: FDA-Public Use
  Company Number: JP-JNJFOC-20060307209

PATIENT
  Age: 44 Year
  Sex: Female
  Weight: 28 kg

DRUGS (6)
  1. RISPERDAL [Suspect]
     Route: 048
  2. RISPERDAL [Suspect]
     Route: 048
  3. PHENYTOIN [Concomitant]
  4. BIFIDOBACTERIUM [Concomitant]
  5. LITHIUM CARBONATE [Concomitant]
  6. PROPERICIAZINE [Concomitant]

REACTIONS (1)
  - DEATH [None]
